FAERS Safety Report 16119941 (Version 4)
Quarter: 2021Q3

REPORT INFORMATION
  Report Type: Spontaneous
  Country: PL (occurrence: PL)
  Receive Date: 20190326
  Receipt Date: 20210914
  Transmission Date: 20211014
  Serious: Yes (Death, Hospitalization, Other)
  Sender: FDA-Public Use
  Company Number: PL-OTSUKA-2019_008670

PATIENT
  Age: 8 Month
  Sex: Male

DRUGS (9)
  1. VFEND [Suspect]
     Active Substance: VORICONAZOLE
     Indication: ANTIFUNGAL PROPHYLAXIS
     Dosage: 3 MG/KG, BID (2/DAY)
     Route: 048
  2. FUNGIZONE [Concomitant]
     Active Substance: AMPHOTERICIN B
     Indication: PRODUCT USED FOR UNKNOWN INDICATION
     Dosage: 12 MG/KG
     Route: 048
  3. BUSILVEX [Suspect]
     Active Substance: BUSULFAN
     Indication: STEM CELL TRANSPLANT
     Dosage: 1.0 MG/KG
     Route: 042
  4. VFEND [Suspect]
     Active Substance: VORICONAZOLE
     Dosage: 6 MG/KG, BID (2/DAY)
     Route: 048
  5. SOLU?MEDROL [Suspect]
     Active Substance: METHYLPREDNISOLONE SODIUM SUCCINATE
     Indication: CHRONIC GRANULOMATOUS DISEASE
     Dosage: UNK
     Route: 065
  6. AMBISOME [Concomitant]
     Active Substance: AMPHOTERICIN B
     Indication: PRODUCT USED FOR UNKNOWN INDICATION
     Dosage: MG/KG, QD (1/DAY)
     Route: 042
  7. FLUDARABINE [Suspect]
     Active Substance: FLUDARABINE PHOSPHATE
     Indication: TRANSPLANT
     Dosage: 40 MG/M2, QD (1/DAY)
     Route: 042
  8. VORICONAZOLE. [Suspect]
     Active Substance: VORICONAZOLE
     Indication: PARONYCHIA
     Dosage: UNK
     Route: 042
  9. CAMPATH [Suspect]
     Active Substance: ALEMTUZUMAB
     Indication: PROPHYLAXIS AGAINST GRAFT VERSUS HOST DISEASE
     Dosage: 0.2 MG/KG, TID (3/DAY)
     Route: 065

REACTIONS (13)
  - Hemiplegia [Unknown]
  - Mucosal inflammation [Unknown]
  - Pyrexia [Unknown]
  - Hydrocephalus [Unknown]
  - Altered state of consciousness [Unknown]
  - Cerebral disorder [Unknown]
  - Neurological decompensation [Fatal]
  - Loss of consciousness [Unknown]
  - Cerebral aspergillosis [Fatal]
  - Paronychia [Unknown]
  - Hypertensive crisis [Unknown]
  - Epilepsy [Unknown]
  - Hypertension [Unknown]

NARRATIVE: CASE EVENT DATE: 201106
